FAERS Safety Report 5782493-0 (Version None)
Quarter: 2008Q2

REPORT INFORMATION
  Report Type: 
  Country: None (occurrence: None)
  Receive Date: 20080623
  Receipt Date: 20080612
  Transmission Date: 20081010
  Serious: Yes (Other)
  Sender: FDA-Public Use
  Company Number: US-JNJFOC-20080603701

PATIENT
  Sex: Male
  Weight: 79.38 kg

DRUGS (18)
  1. REMICADE [Suspect]
     Route: 042
  2. REMICADE [Suspect]
     Indication: RHEUMATOID ARTHRITIS
     Route: 042
  3. REMICADE [Suspect]
     Indication: CROHN'S DISEASE
     Route: 042
  4. REMICADE [Suspect]
     Indication: COLITIS ULCERATIVE
     Route: 042
  5. METHYLPREDNISOLONE [Concomitant]
     Indication: PROPHYLAXIS
  6. ALLEGRA [Concomitant]
     Indication: INFECTION PROPHYLAXIS
  7. ASACOL [Concomitant]
     Indication: COLITIS ULCERATIVE
  8. LIDEX [Concomitant]
     Indication: COLITIS ULCERATIVE
  9. HYOSCYAMINE [Concomitant]
     Indication: FREQUENT BOWEL MOVEMENTS
  10. LOTREL [Concomitant]
     Indication: HYPERTENSION
     Dosage: 5/20
  11. LANTIS [Concomitant]
     Indication: DIABETES MELLITUS
     Dosage: 40-60 ADJUSTABLE UNITS
  12. NOVOLOG [Concomitant]
     Indication: DIABETES MELLITUS
     Dosage: 20 UNITS
  13. LIPITOR [Concomitant]
     Indication: BLOOD CHOLESTEROL
  14. ZANTAC [Concomitant]
     Indication: STOMACH DISCOMFORT
  15. GAS EX [Concomitant]
     Indication: FLATULENCE
  16. ASPIRIN [Concomitant]
     Indication: ANTICOAGULANT THERAPY
  17. HYDROCODONE [Concomitant]
     Indication: PAIN
  18. PRILOSEC [Concomitant]
     Indication: HIATUS HERNIA

REACTIONS (7)
  - CHEST DISCOMFORT [None]
  - DYSPNOEA [None]
  - EPISTAXIS [None]
  - INFUSION RELATED REACTION [None]
  - JOINT LOCK [None]
  - LUNG INFECTION [None]
  - PRURITUS [None]
